FAERS Safety Report 6888564-X (Version None)
Quarter: 2010Q3

REPORT INFORMATION
  Report Type: 
  Country: None (occurrence: None)
  Receive Date: 20100730
  Receipt Date: 20100722
  Transmission Date: 20110219
  Serious: Yes (Other)
  Sender: FDA-Public Use
  Company Number: FR-ABBOTT-10P-056-0659503-00

PATIENT
  Sex: Male

DRUGS (15)
  1. SEVOFLURANE [Suspect]
     Indication: ANAESTHESIA
     Route: 055
     Dates: start: 20100510, end: 20100510
  2. RIVAROXABAN [Suspect]
     Indication: KNEE OPERATION
     Route: 048
     Dates: start: 20100510, end: 20100519
  3. ROPIVACAINE [Suspect]
     Indication: NERVE BLOCK
     Route: 037
     Dates: start: 20100510
  4. SUFENTANIL [Suspect]
     Indication: ANAESTHESIA
     Route: 042
     Dates: start: 20100510, end: 20100510
  5. KETOPROFEN [Suspect]
     Indication: POSTOPERATIVE ANALGESIA
     Route: 048
     Dates: start: 20100511, end: 20100512
  6. MORPHINE [Suspect]
     Indication: POSTOPERATIVE ANALGESIA
     Route: 042
     Dates: start: 20100510, end: 20100512
  7. PARACETAMOL [Suspect]
     Indication: POSTOPERATIVE ANALGESIA
     Route: 042
     Dates: start: 20100511, end: 20100512
  8. CEFAMANDOLE SODIUM [Suspect]
     Indication: PRODUCT USED FOR UNKNOWN INDICATION
     Route: 040
     Dates: start: 20100510, end: 20100511
  9. VENOFER [Suspect]
     Indication: ANAEMIA
     Route: 042
     Dates: start: 20100511
  10. TAHOR [Concomitant]
     Indication: PRODUCT USED FOR UNKNOWN INDICATION
  11. VASTAREL [Concomitant]
     Indication: PRODUCT USED FOR UNKNOWN INDICATION
  12. PANTOPRAZOLE SODIUM [Concomitant]
     Indication: PRODUCT USED FOR UNKNOWN INDICATION
  13. XATRAL [Concomitant]
     Indication: PRODUCT USED FOR UNKNOWN INDICATION
  14. PIASCLEDINE [Concomitant]
     Indication: PRODUCT USED FOR UNKNOWN INDICATION
  15. STRUCTUM [Concomitant]
     Indication: PRODUCT USED FOR UNKNOWN INDICATION

REACTIONS (4)
  - CHOLESTASIS [None]
  - CONFUSIONAL STATE [None]
  - HEPATIC ENZYME INCREASED [None]
  - JAUNDICE [None]
